FAERS Safety Report 10653857 (Version 1)
Quarter: 2014Q4

REPORT INFORMATION
  Report Type: Spontaneous
  Country: US (occurrence: None)
  Receive Date: 20141212
  Receipt Date: 20141212
  Transmission Date: 20150529
  Serious: Yes (Disabling)
  Sender: FDA-Public Use
  Company Number: None

PATIENT
  Age: 66 Year
  Sex: Female

DRUGS (15)
  1. AUGEMENTIN [Concomitant]
  2. GENERIC ZYRTEC [Concomitant]
  3. CEPHALEXIN. [Concomitant]
     Active Substance: CEPHALEXIN
  4. LINZESS [Suspect]
     Active Substance: LINACLOTIDE
     Indication: CONSTIPATION
     Route: 048
     Dates: start: 20140820, end: 20141122
  5. I CAPS [Concomitant]
  6. LINZESS [Suspect]
     Active Substance: LINACLOTIDE
     Indication: IRRITABLE BOWEL SYNDROME
     Route: 048
     Dates: start: 20140820, end: 20141122
  7. SPIRONOLACTONE. [Concomitant]
     Active Substance: SPIRONOLACTONE
  8. VITAMIN D3 [Concomitant]
     Active Substance: CHOLECALCIFEROL
  9. ADVIL P.M. [Concomitant]
  10. NYSTATIN. [Concomitant]
     Active Substance: NYSTATIN
  11. LORAZEPAM. [Concomitant]
     Active Substance: LORAZEPAM
  12. CYMBALTA [Concomitant]
     Active Substance: DULOXETINE HYDROCHLORIDE
  13. NAMBUMETONE [Concomitant]
  14. ACYCLOVIR. [Concomitant]
     Active Substance: ACYCLOVIR
  15. HYDROCODONE [Concomitant]
     Active Substance: HYDROCODONE

REACTIONS (5)
  - Mouth ulceration [None]
  - Viral infection [None]
  - Drug ineffective [None]
  - Diarrhoea [None]
  - Aphthous stomatitis [None]

NARRATIVE: CASE EVENT DATE: 20140820
